FAERS Safety Report 10198392 (Version 1)
Quarter: 2014Q2

REPORT INFORMATION
  Report Type: Spontaneous
  Country: US (occurrence: US)
  Receive Date: 20140527
  Receipt Date: 20140527
  Transmission Date: 20141212
  Serious: No
  Sender: FDA-Public Use
  Company Number: US-NOVEN-13US007238

PATIENT
  Age: 8 Year
  Sex: Male

DRUGS (3)
  1. DAYTRANA [Suspect]
     Indication: ATTENTION DEFICIT/HYPERACTIVITY DISORDER
     Dosage: 30 MG, UNKNOWN
     Route: 062
     Dates: start: 20130625
  2. RITALIN [Concomitant]
     Indication: ATTENTION DEFICIT/HYPERACTIVITY DISORDER
     Dosage: 15 MG, MORNING
     Route: 048
     Dates: start: 201306
  3. CLONIDINE [Concomitant]
     Indication: IMPULSE-CONTROL DISORDER
     Dosage: TID
     Route: 048

REACTIONS (5)
  - Drug effect delayed [Not Recovered/Not Resolved]
  - Incorrect drug administration duration [Recovered/Resolved]
  - Drug prescribing error [Unknown]
  - Drug administered at inappropriate site [Recovered/Resolved]
  - Product quality issue [Recovered/Resolved]
